FAERS Safety Report 20438420 (Version 1)
Quarter: 2022Q1

REPORT INFORMATION
  Report Type: Spontaneous
  Country: US (occurrence: None)
  Receive Date: 20220204
  Receipt Date: 20220204
  Transmission Date: 20220423
  Serious: Yes (unspecified)
  Sender: FDA-Public Use
  Company Number: None

PATIENT
  Age: 87 Year
  Sex: Female
  Weight: 97.5 kg

DRUGS (1)
  1. RITUXAN [Suspect]
     Active Substance: RITUXIMAB
     Indication: Follicular lymphoma
     Dosage: FREQUENCY : MONTHLY;?
     Route: 041
     Dates: start: 20220126

REACTIONS (2)
  - Oropharyngeal pain [None]
  - Infusion related reaction [None]

NARRATIVE: CASE EVENT DATE: 20220126
